FAERS Safety Report 9988747 (Version 1)
Quarter: 2014Q1

REPORT INFORMATION
  Report Type: Not Available
  Country: US (occurrence: US)
  Receive Date: 20140310
  Receipt Date: 20140310
  Transmission Date: 20141002
  Serious: Yes (Other)
  Sender: FDA-Public Use
  Company Number: US-LUPIN PHARMACEUTICALS INC.-E2B_00001772

PATIENT
  Sex: Female

DRUGS (3)
  1. LOSARTAN POTASSIUM AND HYDROCHLOROTHIAZIDE TABLETS USP 100MG/25MG [Suspect]
     Indication: HYPERTENSION
     Dates: start: 2011
  2. INSULIN [Concomitant]
     Indication: DIABETES MELLITUS
     Route: 058
  3. GLUCOPHAGE [Concomitant]
     Indication: DIABETES MELLITUS

REACTIONS (4)
  - Systemic lupus erythematosus [Not Recovered/Not Resolved]
  - Hypotension [Not Recovered/Not Resolved]
  - Cough [Not Recovered/Not Resolved]
  - Intentional drug misuse [Unknown]
